FAERS Safety Report 5020047-4 (Version None)
Quarter: 2006Q2

REPORT INFORMATION
  Report Type: 
  Country: None (occurrence: None)
  Receive Date: 20060607
  Receipt Date: 20060602
  Transmission Date: 20061013
  Serious: Yes (Congenital Anomaly)
  Sender: FDA-Public Use
  Company Number: US-GLAXOSMITHKLINE-A0607752A

PATIENT
  Sex: Male

DRUGS (3)
  1. PAXIL [Suspect]
     Indication: ANXIETY DISORDER
     Dosage: 10MG PER DAY
  2. SYNTHROID [Concomitant]
  3. VITAMIN AND MINERAL PRENATAL SUPPLEMENT W/ FOLIC ACID CAP [Concomitant]

REACTIONS (7)
  - CARDIAC DISORDER [None]
  - CONGENITAL AORTIC VALVE INCOMPETENCE [None]
  - DRUG EXPOSURE DURING PREGNANCY [None]
  - FOETAL MALFORMATION [None]
  - HYPOSPADIAS [None]
  - POLYDACTYLY [None]
  - VENTRICULAR SEPTAL DEFECT [None]
